FAERS Safety Report 19270243 (Version 2)
Quarter: 2021Q2

REPORT INFORMATION
  Report Type: Spontaneous
  Country: US (occurrence: US)
  Receive Date: 20210518
  Receipt Date: 20210518
  Transmission Date: 20210717
  Serious: Yes (Other)
  Sender: FDA-Public Use
  Company Number: US-HIKMA PHARMACEUTICALS USA INC.-US-H14001-21-02279

PATIENT
  Sex: Female
  Weight: 61.69 kg

DRUGS (2)
  1. MERCAPTOPURINE. [Concomitant]
     Active Substance: MERCAPTOPURINE
     Indication: PRODUCT USED FOR UNKNOWN INDICATION
     Route: 065
  2. BALSALAZIDE DISODIUM. [Suspect]
     Active Substance: BALSALAZIDE DISODIUM
     Indication: COLITIS ULCERATIVE
     Route: 065

REACTIONS (5)
  - Colitis ulcerative [Unknown]
  - Rectal haemorrhage [Unknown]
  - Feeling abnormal [Unknown]
  - Arthralgia [Unknown]
  - Drug ineffective [Unknown]
